FAERS Safety Report 11766658 (Version 1)
Quarter: 2015Q4

REPORT INFORMATION
  Report Type: Spontaneous
  Country: IN (occurrence: IN)
  Receive Date: 20151123
  Receipt Date: 20151123
  Transmission Date: 20160304
  Serious: Yes (Life-Threatening, Hospitalization)
  Sender: FDA-Public Use
  Company Number: IN-ACCORD-035598

PATIENT
  Age: 59 Year
  Sex: Female
  Weight: 50 kg

DRUGS (8)
  1. ASPIRIN. [Suspect]
     Active Substance: ASPIRIN
     Indication: ACUTE CORONARY SYNDROME
     Dosage: FOLLOWED BY 75 MG ONCE DAILY
     Dates: end: 20140627
  2. ENOXAPARIN/ENOXAPARIN SODIUM [Suspect]
     Active Substance: ENOXAPARIN\ENOXAPARIN SODIUM
     Indication: ACUTE CORONARY SYNDROME
     Route: 058
     Dates: end: 20140627
  3. ISOSORBIDE. [Concomitant]
     Active Substance: ISOSORBIDE
     Route: 060
  4. GLYCERYL TRINITRATE [Concomitant]
     Active Substance: NITROGLYCERIN
  5. PANTOPRAZOLE [Concomitant]
     Active Substance: PANTOPRAZOLE SODIUM
     Dates: start: 20140623
  6. CLOPIDOGREL [Suspect]
     Active Substance: CLOPIDOGREL BISULFATE
     Indication: ACUTE CORONARY SYNDROME
     Dosage: FOLLOWED BY 75 MG
     Dates: end: 20140627
  7. ALPRAZOLAM. [Concomitant]
     Active Substance: ALPRAZOLAM
     Dates: start: 20140623
  8. ATORVASTATIN [Concomitant]
     Active Substance: ATORVASTATIN
     Dates: start: 20140623

REACTIONS (4)
  - Hypotension [Recovering/Resolving]
  - Haematemesis [Recovering/Resolving]
  - Gastritis erosive [Recovering/Resolving]
  - Heart rate increased [Recovering/Resolving]
